FAERS Safety Report 16934497 (Version 1)
Quarter: 2019Q4

REPORT INFORMATION
  Report Type: Spontaneous
  Country: US (occurrence: US)
  Receive Date: 20191018
  Receipt Date: 20191018
  Transmission Date: 20200122
  Serious: Yes (Hospitalization)
  Sender: FDA-Public Use
  Company Number: US-BAYER-2019-186905

PATIENT
  Age: 24 Year
  Sex: Female

DRUGS (2)
  1. ACETYLSALICYLIC ACID (CARDIO) [Suspect]
     Active Substance: ASPIRIN
     Indication: SYSTEMIC LUPUS ERYTHEMATOSUS
     Dosage: UNK
  2. ENOXAPARIN [Suspect]
     Active Substance: ENOXAPARIN

REACTIONS (6)
  - Contraindicated product administered [None]
  - Maternal exposure during pregnancy [None]
  - Labelled drug-drug interaction medication error [None]
  - Product use in unapproved indication [None]
  - Postpartum haemorrhage [None]
  - Off label use [None]
